FAERS Safety Report 9838670 (Version 1)
Quarter: 2014Q1

REPORT INFORMATION
  Report Type: Report from Study
  Country: NL (occurrence: NL)
  Receive Date: 20140123
  Receipt Date: 20140123
  Transmission Date: 20141002
  Serious: Yes (Other)
  Sender: FDA-Public Use
  Company Number: NL-BAYER-2014-010875

PATIENT
  Age: 57 Year
  Sex: Male

DRUGS (5)
  1. SORAFENIB (RAF KINASE INHIBITOR) [Suspect]
     Indication: RENAL CELL CARCINOMA
     Dosage: 400 MG, BID
     Route: 048
  2. CG250 [Interacting]
     Indication: RENAL CELL CARCINOMA
     Dosage: 5 MG
     Route: 042
  3. CG250 [Interacting]
     Indication: RENAL CELL CARCINOMA
     Dosage: 5 MG
     Route: 042
  4. DTPA [Concomitant]
  5. INDIUM (111 IN) [Concomitant]
     Dosage: 100 MBQ, UNK
     Route: 042

REACTIONS (2)
  - Drug effect decreased [None]
  - Drug interaction [None]
